FAERS Safety Report 8447596-0 (Version None)
Quarter: 2012Q2

REPORT INFORMATION
  Report Type: 
  Country: None (occurrence: None)
  Receive Date: 20120619
  Receipt Date: 20120605
  Transmission Date: 20120825
  Serious: Yes (Other)
  Sender: FDA-Public Use
  Company Number: DE-UCBSA-059495

PATIENT
  Sex: Female

DRUGS (17)
  1. PREDNISOLONE [Concomitant]
     Dates: start: 20100216, end: 20100220
  2. PREDNISOLONE [Concomitant]
     Dates: start: 20100221, end: 20100225
  3. ALENDRONATE SODIUM [Concomitant]
     Indication: OSTEOPOROSIS
     Dosage: A SUFFICIENT QUANTITY
     Dates: start: 20090603
  4. PREGABALIN [Concomitant]
     Indication: PAIN
     Dates: start: 20080526
  5. PANTOPRAZOLE [Concomitant]
     Indication: GASTRITIS PROPHYLAXIS
     Dates: start: 20090603
  6. PREDNISOLONE [Concomitant]
     Dates: start: 20100211, end: 20100215
  7. PREDNISOLONE [Concomitant]
     Dates: start: 20120216
  8. METAMIZOL [Concomitant]
     Indication: PAIN
     Dates: start: 20090101
  9. CALCIUM CARBONATE [Concomitant]
     Indication: OSTEOPENIA
     Dates: start: 20080501
  10. PREDNISOLONE [Concomitant]
     Dates: start: 20100303, end: 20120215
  11. METHOTREXATE [Concomitant]
     Dosage: A SUFFICIENT QUANTITY
     Dates: start: 20090901
  12. PREDNISOLONE [Concomitant]
     Indication: RHEUMATOID ARTHRITIS
     Dates: start: 20100206, end: 20100210
  13. FOLSAN [Concomitant]
     Indication: PROPHYLAXIS
     Dosage: FREQUENCY:TIS
     Dates: start: 20091216
  14. CIMZIA [Suspect]
     Indication: RHEUMATOID ARTHRITIS
     Dates: start: 20100209
  15. PREDNISOLONE [Concomitant]
     Dates: start: 20100226, end: 20100302
  16. METHOTREXATE [Concomitant]
     Indication: RHEUMATOID ARTHRITIS
     Dosage: A SUFFICIENT QUANTITY
     Dates: start: 20091216, end: 20100914
  17. INSULIN [Concomitant]
     Indication: DIABETES MELLITUS
     Dosage: 20 I.E.
     Dates: start: 20120101

REACTIONS (1)
  - DIABETES MELLITUS [None]
